FAERS Safety Report 23736887 (Version 1)
Quarter: 2024Q2

REPORT INFORMATION
  Report Type: Spontaneous
  Country: US (occurrence: US)
  Receive Date: 20240412
  Receipt Date: 20240412
  Transmission Date: 20240716
  Serious: Yes (Death, Hospitalization, Other)
  Sender: FDA-Public Use
  Company Number: US-SUN PHARMACEUTICAL INDUSTRIES LTD-2024R1-440727

PATIENT
  Age: 6 Month
  Sex: Male

DRUGS (2)
  1. DEXAMETHASONE [Suspect]
     Active Substance: DEXAMETHASONE
     Indication: COVID-19
     Route: 065
  2. REMDESIVIR [Suspect]
     Active Substance: REMDESIVIR
     Indication: COVID-19
     Route: 065

REACTIONS (7)
  - Thrombocytopenia [Unknown]
  - Cerebrovascular accident [Not Recovered/Not Resolved]
  - Infarction [Unknown]
  - Condition aggravated [Fatal]
  - Cardiac arrest [Fatal]
  - Pulse absent [Fatal]
  - Mycobacterium tuberculosis complex test positive [Unknown]
